FAERS Safety Report 21964095 (Version 1)
Quarter: 2023Q1

REPORT INFORMATION
  Report Type: Spontaneous
  Country: US (occurrence: None)
  Receive Date: 20230206
  Receipt Date: 20230206
  Transmission Date: 20230417
  Serious: Yes (Hospitalization, Other)
  Sender: FDA-Public Use
  Company Number: None

PATIENT
  Sex: Male

DRUGS (1)
  1. COSENTYX [Suspect]
     Active Substance: SECUKINUMAB
     Dosage: OTHER FREQUENCY : WEEK 0,1 ;?
     Route: 058
     Dates: start: 202302

REACTIONS (3)
  - Therapy interrupted [None]
  - Hip surgery [None]
  - Condition aggravated [None]
